FAERS Safety Report 5146315-3 (Version None)
Quarter: 2006Q4

REPORT INFORMATION
  Report Type: 
  Country: None (occurrence: None)
  Receive Date: 20061102
  Receipt Date: 20061020
  Transmission Date: 20070319
  Serious: Yes (Hospitalization, Other)
  Sender: FDA-Public Use
  Company Number: 2006130067

PATIENT
  Age: 80 Year
  Sex: Female

DRUGS (1)
  1. CELEBREX [Suspect]
     Indication: ARTHRITIS
     Dosage: 200 MG (200 MG, 1 IN 1 D)
     Dates: start: 19980101, end: 20050901

REACTIONS (4)
  - EJECTION FRACTION DECREASED [None]
  - HEART INJURY [None]
  - MYOCARDIAL INFARCTION [None]
  - VASCULAR INJURY [None]
